FAERS Safety Report 19084346 (Version 1)
Quarter: 2021Q2

REPORT INFORMATION
  Report Type: Spontaneous
  Country: CN (occurrence: CN)
  Receive Date: 20210401
  Receipt Date: 20210401
  Transmission Date: 20210717
  Serious: Yes (Hospitalization)
  Sender: FDA-Public Use
  Company Number: CN-ALLERGAN-2113632US

PATIENT

DRUGS (1)
  1. BOTOX [Suspect]
     Active Substance: ONABOTULINUMTOXINA
     Indication: MUSCLE HYPERTROPHY
     Dosage: 50 UNITS, SINGLE
     Dates: start: 20210327, end: 20210327

REACTIONS (5)
  - Rash [Recovering/Resolving]
  - Anaphylactic reaction [Recovering/Resolving]
  - Pruritus [Recovering/Resolving]
  - Heart rate increased [Recovering/Resolving]
  - Off label use [Unknown]

NARRATIVE: CASE EVENT DATE: 20210327
